FAERS Safety Report 6291094-X (Version None)
Quarter: 2009Q3

REPORT INFORMATION
  Report Type: 
  Country: None (occurrence: None)
  Receive Date: 20090730
  Receipt Date: 20090722
  Transmission Date: 20100115
  Serious: Yes (Other)
  Sender: FDA-Public Use
  Company Number: A0789745A

PATIENT
  Age: 93 Year
  Sex: Female

DRUGS (3)
  1. ADVAIR HFA [Suspect]
     Indication: CHRONIC OBSTRUCTIVE PULMONARY DISEASE
     Dosage: 1PUFF TWICE PER DAY
     Route: 055
     Dates: start: 20080601
  2. NITROGLYCERIN [Concomitant]
  3. ADVIL [Concomitant]

REACTIONS (3)
  - COUGH [None]
  - ILL-DEFINED DISORDER [None]
  - VISUAL ACUITY REDUCED [None]
